FAERS Safety Report 26078276 (Version 2)
Quarter: 2025Q4

REPORT INFORMATION
  Report Type: Spontaneous
  Country: EU (occurrence: EU)
  Receive Date: 20251122
  Receipt Date: 20251202
  Transmission Date: 20260118
  Serious: Yes (Other)
  Sender: TEVA
  Company Number: None

PATIENT
  Age: 50 Year
  Sex: Female

DRUGS (2)
  1. PREDNISOLONE [Suspect]
     Active Substance: PREDNISOLONE
     Indication: Cutaneous lupus erythematosus
     Route: 048
     Dates: start: 202509, end: 20250905
  2. PREDNISOLONE [Suspect]
     Active Substance: PREDNISOLONE
     Indication: Cutaneous lupus erythematosus
     Route: 048
     Dates: start: 202509, end: 20250905

REACTIONS (6)
  - Oedema [Not Recovered/Not Resolved]
  - Incorrect route of product administration [Recovered/Resolved]
  - Overdose [Recovered/Resolved]
  - General physical health deterioration [Recovered/Resolved]
  - Insomnia [Recovered/Resolved]
  - Arthralgia [Recovered/Resolved]

NARRATIVE: CASE EVENT DATE: 20250801
